FAERS Safety Report 7545767-9 (Version None)
Quarter: 2011Q2

REPORT INFORMATION
  Report Type: 
  Country: None (occurrence: None)
  Receive Date: 20110614
  Receipt Date: 20110607
  Transmission Date: 20111010
  Serious: Yes (Hospitalization)
  Sender: FDA-Public Use
  Company Number: GB-SANOFI-AVENTIS-2010SA068577

PATIENT
  Age: 75 Year
  Sex: Male

DRUGS (13)
  1. ASPIRIN [Concomitant]
     Route: 048
  2. EPLERENONE [Concomitant]
  3. CLOPIDOGREL [Concomitant]
     Route: 048
  4. TAMSULOSIN HCL [Concomitant]
  5. CANDESARTAN CILEXETIL [Concomitant]
  6. FUROSEMIDE [Concomitant]
  7. ALBUTEROL [Concomitant]
     Dosage: DOSE:2 UNIT(S)
  8. GLICLAZIDE [Concomitant]
  9. PILOCARPINE [Concomitant]
  10. DRONEDARONE HCL [Suspect]
     Indication: TACHYARRHYTHMIA
     Route: 048
     Dates: start: 20100527, end: 20101022
  11. BISOPROLOL FUMARATE [Concomitant]
     Route: 048
  12. PRAVASTATIN [Concomitant]
  13. XALATAN [Concomitant]
     Dosage: DOSE:1 UNIT(S)

REACTIONS (5)
  - BLOOD THYROID STIMULATING HORMONE DECREASED [None]
  - RENAL FAILURE ACUTE [None]
  - THYROXINE ABNORMAL [None]
  - GLOMERULAR FILTRATION RATE DECREASED [None]
  - HYPERTHYROIDISM [None]
